FAERS Safety Report 16015857 (Version 3)
Quarter: 2019Q1

REPORT INFORMATION
  Report Type: Spontaneous
  Country: EG (occurrence: EG)
  Receive Date: 20190228
  Receipt Date: 20190318
  Transmission Date: 20190418
  Serious: Yes (Death, Hospitalization, Other)
  Sender: FDA-Public Use
  Company Number: EG-SAKK-2019SA050392AA

PATIENT
  Age: 3 Year
  Sex: Male
  Weight: 5 kg

DRUGS (1)
  1. CEREZYME [Suspect]
     Active Substance: IMIGLUCERASE
     Indication: GAUCHER^S DISEASE TYPE III
     Dosage: 60 IU/KG (1440 U), QOW
     Route: 041
     Dates: start: 20160525, end: 20180910

REACTIONS (9)
  - Hypoxia [Fatal]
  - Cardiac arrest [Fatal]
  - Choking [Unknown]
  - Pneumonia [Fatal]
  - Lower respiratory tract infection [Fatal]
  - Spleen disorder [Unknown]
  - Spleen congestion [Unknown]
  - Abdominal pain [Unknown]
  - Irritability [Unknown]

NARRATIVE: CASE EVENT DATE: 20170528
